FAERS Safety Report 5746936-0 (Version None)
Quarter: 2008Q2

REPORT INFORMATION
  Report Type: 
  Country: None (occurrence: None)
  Receive Date: 20080522
  Receipt Date: 20080512
  Transmission Date: 20081010
  Serious: Yes (Congenital Anomaly)
  Sender: FDA-Public Use
  Company Number: US-GILEAD-2008-0016238

PATIENT
  Sex: Male

DRUGS (4)
  1. TRUVADA [Suspect]
     Route: 048
     Dates: start: 20070315
  2. KALETRA [Concomitant]
     Route: 048
     Dates: start: 20070315
  3. DAPSONE [Concomitant]
  4. AZT [Concomitant]
     Route: 042

REACTIONS (2)
  - MATERNAL DRUGS AFFECTING FOETUS [None]
  - POLYDACTYLY [None]
